FAERS Safety Report 8351554 (Version 4)
Quarter: 2013Q2

REPORT INFORMATION
  Report Type: Spontaneous
  Country: US (occurrence: US)
  Receive Date: 20120124
  Receipt Date: 20130401
  Transmission Date: 20140414
  Serious: Yes (Death, Hospitalization)
  Sender: FDA-Public Use
  Company Number: US-ACTELION-A-NJ2012-59870

PATIENT
  Age: 38 Year
  Sex: Female

DRUGS (16)
  1. VELETRI [Suspect]
     Indication: PULMONARY ARTERIAL HYPERTENSION
     Dosage: 10 NG/KG, PER MIN
     Route: 041
     Dates: start: 20111219, end: 20120113
  2. SILDENAFIL [Concomitant]
     Dosage: 20 MG, TID
  3. COUMADIN [Concomitant]
  4. INTERFERON [Concomitant]
     Dosage: UNK, CONT INFUS
     Route: 041
  5. OCEAN NASAL [Concomitant]
     Dosage: 2 PUFF, QID
  6. FOLIC ACID [Concomitant]
     Dosage: 1 MG, QD
  7. AMBIEN [Concomitant]
     Dosage: 10 MG, QPM
     Route: 048
  8. AMIODARONE [Concomitant]
     Dosage: 200 MG, BID
  9. BUMEX [Concomitant]
     Dosage: 2 MG, BID
     Route: 048
  10. CALCIUM + VITAMIN D [Concomitant]
     Dosage: 1 UNK, QD
  11. COLACE [Concomitant]
     Dosage: 100 MG, BID
  12. K-DUR [Concomitant]
     Dosage: 20 MEQ, BID
  13. PROTONIX [Concomitant]
     Dosage: 40 MG, QD
     Route: 048
  14. SENOKOT [Concomitant]
     Dosage: 1 UNK, QD
  15. SYNTHROID [Concomitant]
     Dosage: 50 MCG, QD
  16. ZAROXOLYN [Concomitant]
     Dosage: 2.5 MG, MON AND THURS

REACTIONS (14)
  - Renal failure acute [Fatal]
  - Cardiac arrest [Fatal]
  - Hyperkalaemia [Fatal]
  - Respiratory failure [Fatal]
  - Dyspnoea [Fatal]
  - Multi-organ failure [Fatal]
  - Brain injury [Fatal]
  - Ischaemic hepatitis [Fatal]
  - Congestive cardiomyopathy [Fatal]
  - Coagulation time prolonged [Unknown]
  - Prothrombin time prolonged [Unknown]
  - International normalised ratio increased [Unknown]
  - Pulmonary oedema [Fatal]
  - Pulmonary hypertension [Fatal]
